FAERS Safety Report 5724307-0 (Version None)
Quarter: 2008Q2

REPORT INFORMATION
  Report Type: 
  Country: None (occurrence: None)
  Receive Date: 20080428
  Receipt Date: 20080416
  Transmission Date: 20081010
  Serious: Yes (Other)
  Sender: FDA-Public Use
  Company Number: 2008009817

PATIENT
  Age: 40 Year
  Sex: Male
  Weight: 90.7 kg

DRUGS (2)
  1. ROGAINE 5 [Suspect]
     Indication: ALOPECIA
     Dosage: 1/2 CAP FULL TWICE A DAY (2 IN 1 D) TOPICAL
     Route: 061
     Dates: start: 20080404, end: 20080413
  2. OXYCODONE HCL [Concomitant]

REACTIONS (2)
  - LYMPHADENOPATHY [None]
  - PAIN [None]
